FAERS Safety Report 12450983 (Version 1)
Quarter: 2016Q2

REPORT INFORMATION
  Report Type: Spontaneous
  Country: US (occurrence: US)
  Receive Date: 20160609
  Receipt Date: 20160609
  Transmission Date: 20160815
  Serious: No
  Sender: FDA-Public Use
  Company Number: US-BIOGEN-2016BI00215593

PATIENT

DRUGS (1)
  1. TECFIDERA [Suspect]
     Active Substance: DIMETHYL FUMARATE
     Indication: MULTIPLE SCLEROSIS
     Route: 065

REACTIONS (8)
  - Neutrophil count decreased [Unknown]
  - Lymphocyte count decreased [Unknown]
  - Sinusitis [Unknown]
  - White blood cell count increased [Unknown]
  - Lymphocyte percentage decreased [Unknown]
  - White blood cell count abnormal [Unknown]
  - Neutrophil count increased [Unknown]
  - White blood cell count decreased [Unknown]
